FAERS Safety Report 5731653-3 (Version None)
Quarter: 2008Q2

REPORT INFORMATION
  Report Type: 
  Country: None (occurrence: None)
  Receive Date: 20080508
  Receipt Date: 20080428
  Transmission Date: 20081010
  Serious: Yes (Other)
  Sender: FDA-Public Use
  Company Number: PHHY2008BR02783

PATIENT
  Sex: Female
  Weight: 58 kg

DRUGS (3)
  1. GLEEVEC [Suspect]
     Indication: HEPATIC NEOPLASM MALIGNANT
     Dosage: 400 MG, QD
     Route: 048
  2. PAMELOR [Concomitant]
     Indication: FIBROMYALGIA
     Route: 048
     Dates: start: 20060101
  3. CLONAZEPAM [Concomitant]
     Indication: INSOMNIA
     Dosage: 2 MG, QHS
     Route: 048

REACTIONS (4)
  - DIARRHOEA [None]
  - HEADACHE [None]
  - URINARY TRACT INFECTION [None]
  - WEIGHT INCREASED [None]
